FAERS Safety Report 17290519 (Version 2)
Quarter: 2020Q4

REPORT INFORMATION
  Report Type: Report from Study
  Country: None (occurrence: US)
  Receive Date: 20200121
  Receipt Date: 20201016
  Transmission Date: 20210113
  Serious: Yes (Hospitalization, Other)
  Sender: FDA-Public Use
  Company Number: US-ABBVIE-20K-163-3240087-00

PATIENT
  Age: 22 Year
  Sex: Female

DRUGS (3)
  1. HUMIRA [Suspect]
     Active Substance: ADALIMUMAB
     Indication: PRODUCT USED FOR UNKNOWN INDICATION
     Route: 058
     Dates: start: 201802, end: 201912
  2. DULOXETINE. [Concomitant]
     Active Substance: DULOXETINE
     Indication: ANTIDEPRESSANT THERAPY
  3. EPIPEN [Concomitant]
     Active Substance: EPINEPHRINE
     Indication: ASTHMA

REACTIONS (13)
  - Urinary retention [Recovered/Resolved]
  - Fluid retention [Recovered/Resolved]
  - Cardiac failure [Recovered/Resolved]
  - Secretion discharge [Recovered/Resolved]
  - Feeling hot [Unknown]
  - Sinus congestion [Recovered/Resolved]
  - Myocarditis [Recovered/Resolved]
  - Lung disorder [Recovered/Resolved]
  - Seizure [Recovered/Resolved]
  - Pericardial effusion [Recovered/Resolved]
  - Nasopharyngitis [Recovered/Resolved]
  - Asthenia [Recovered/Resolved]
  - Vomiting [Recovered/Resolved]

NARRATIVE: CASE EVENT DATE: 201912
